FAERS Safety Report 8557443-4 (Version None)
Quarter: 2012Q3

REPORT INFORMATION
  Report Type: 
  Country: None (occurrence: None)
  Receive Date: 20120801
  Receipt Date: 20120723
  Transmission Date: 20120928
  Serious: Yes (Other)
  Sender: FDA-Public Use
  Company Number: ES-ELI_LILLY_AND_COMPANY-ES201207007940

PATIENT
  Sex: Male
  Weight: 58 kg

DRUGS (4)
  1. ALIMTA [Suspect]
     Dosage: UNK
     Dates: start: 20120713, end: 20120713
  2. TORSEMIDE [Concomitant]
     Indication: HYPERTENSION
     Dosage: UNK
  3. FERROGRADUMET [Concomitant]
     Dosage: UNK
  4. METFORMIN HYDROCHLORIDE [Concomitant]
     Indication: DIABETES MELLITUS
     Dosage: UNK

REACTIONS (1)
  - HAEMATURIA [None]
